FAERS Safety Report 6004533-6 (Version None)
Quarter: 2008Q4

REPORT INFORMATION
  Report Type: 
  Country: None (occurrence: None)
  Receive Date: 20081216
  Receipt Date: 20081208
  Transmission Date: 20090506
  Serious: Yes (Hospitalization)
  Sender: FDA-Public Use
  Company Number: GB-ROCHE-601397

PATIENT
  Sex: Female
  Weight: 75.6 kg

DRUGS (4)
  1. CAPECITABINE [Suspect]
     Indication: COLON CANCER
     Dosage: CURRENT CYCLE-4. DATE MOST RECENT DOSE GIVEN: 28 NOVEMBER 2008.
     Route: 048
     Dates: start: 20080912
  2. CAPECITABINE [Suspect]
     Dosage: DOSE REDUCTION 50%.
     Route: 048
  3. BEVACIZUMAB [Suspect]
     Indication: COLON CANCER
     Dosage: DOSE FORM-INFUSION, MOST RECENT DOSE GIVEN:28 NOVEMBER 2008, DOSE REDUCTION-NONE, CURRENT CYCLE-4.
     Route: 042
     Dates: start: 20080912
  4. PYRIDOXINE HCL [Concomitant]
     Dosage: DATE OF MOST RECENT DOSE: 09 DECEMBER 2008.
     Route: 048
     Dates: start: 20081015

REACTIONS (1)
  - COMPUTERISED TOMOGRAM ABNORMAL [None]
